FAERS Safety Report 6880433-4 (Version None)
Quarter: 2010Q3

REPORT INFORMATION
  Report Type: 
  Country: None (occurrence: None)
  Receive Date: 20100727
  Receipt Date: 20100706
  Transmission Date: 20110219
  Serious: Yes (Hospitalization)
  Sender: FDA-Public Use
  Company Number: A0835091A

PATIENT
  Age: 57 Year
  Sex: Female
  Weight: 90 kg

DRUGS (8)
  1. AVANDIA [Suspect]
     Route: 048
     Dates: end: 20080523
  2. LOPID [Concomitant]
  3. LIPITOR [Concomitant]
  4. NORPRAMINE [Concomitant]
  5. LEXAPRO [Concomitant]
  6. METFORMIN HCL [Concomitant]
  7. AMARYL [Concomitant]
  8. ATIVAN [Concomitant]

REACTIONS (4)
  - ACUTE CORONARY SYNDROME [None]
  - ANGINA UNSTABLE [None]
  - CORONARY ARTERY OCCLUSION [None]
  - MYOCARDIAL INFARCTION [None]
